FAERS Safety Report 18480022 (Version 2)
Quarter: 2020Q4

REPORT INFORMATION
  Report Type: Spontaneous
  Country: US (occurrence: US)
  Receive Date: 20201109
  Receipt Date: 20201215
  Transmission Date: 20210114
  Serious: Yes (Other)
  Sender: FDA-Public Use
  Company Number: US-TEVA-2020-US-1847466

PATIENT
  Sex: Male

DRUGS (1)
  1. TESTOSTERONE CYPIONATE. [Suspect]
     Active Substance: TESTOSTERONE CYPIONATE
     Dosage: 14.2857 MILLIGRAM DAILY; INJECTING .5ML 0.5ML A WEEK
     Route: 065

REACTIONS (4)
  - Blood testosterone decreased [Unknown]
  - Infection [Unknown]
  - Magnetic resonance imaging brain abnormal [Unknown]
  - Needle issue [Unknown]
